FAERS Safety Report 9547586 (Version 1)
Quarter: 2013Q3

REPORT INFORMATION
  Report Type: Spontaneous
  Country: US (occurrence: None)
  Receive Date: 20130920
  Receipt Date: 20130920
  Transmission Date: 20140515
  Serious: Yes (Hospitalization)
  Sender: FDA-Public Use
  Company Number: BR13-298-AE

PATIENT
  Age: 2 Year
  Sex: Female

DRUGS (1)
  1. BUPRENORPHINE/NALOXONE [Suspect]
     Indication: PRODUCT USED FOR UNKNOWN INDICATION
     Dosage: ORAL, UNKNOWN, UNKNOWN
     Route: 048

REACTIONS (4)
  - Accidental exposure to product by child [None]
  - Feeling abnormal [None]
  - Self-induced vomiting [None]
  - Drug screen positive [None]
